FAERS Safety Report 14533307 (Version 2)
Quarter: 2018Q1

REPORT INFORMATION
  Report Type: Report from Study
  Country: None (occurrence: US)
  Receive Date: 20180215
  Receipt Date: 20180326
  Transmission Date: 20180509
  Serious: Yes (Other)
  Sender: FDA-Public Use
  Company Number: US-ABBVIE-17K-163-1996010-00

PATIENT
  Age: 66 Year
  Sex: Female

DRUGS (2)
  1. METHOTREXATE. [Concomitant]
     Active Substance: METHOTREXATE
     Indication: PRODUCT USED FOR UNKNOWN INDICATION
  2. HUMIRA [Suspect]
     Active Substance: ADALIMUMAB
     Indication: RHEUMATOID ARTHRITIS
     Route: 058
     Dates: start: 2011

REACTIONS (17)
  - Bone deformity [Unknown]
  - Pain in extremity [Unknown]
  - Impaired healing [Unknown]
  - Rotator cuff syndrome [Recovering/Resolving]
  - Arthralgia [Not Recovered/Not Resolved]
  - Dry skin [Unknown]
  - Back pain [Unknown]
  - Sinusitis [Unknown]
  - Chest injury [Unknown]
  - Hypertension [Unknown]
  - Epistaxis [Unknown]
  - Inappropriate schedule of drug administration [Unknown]
  - Limb injury [Unknown]
  - Fall [Unknown]
  - Cardiac disorder [Unknown]
  - Migraine [Unknown]
  - Peripheral swelling [Unknown]

NARRATIVE: CASE EVENT DATE: 2017
